FAERS Safety Report 4945834-X (Version None)
Quarter: 2006Q1

REPORT INFORMATION
  Report Type: 
  Country: None (occurrence: None)
  Receive Date: 20060316
  Receipt Date: 20060215
  Transmission Date: 20060701
  Serious: Yes (Death)
  Sender: FDA-Public Use
  Company Number: 2006UW02593

PATIENT
  Age: 71 Year
  Sex: Female
  Weight: 64.5 kg

DRUGS (2)
  1. SEROQUEL [Suspect]
     Indication: BIPOLAR DISORDER
     Route: 048
  2. ATIVAN [Concomitant]
     Indication: ANXIETY
     Route: 048

REACTIONS (3)
  - COMPLETED SUICIDE [None]
  - DEPRESSION [None]
  - GUN SHOT WOUND [None]
